FAERS Safety Report 6958653-X (Version None)
Quarter: 2010Q3

REPORT INFORMATION
  Report Type: 
  Country: None (occurrence: None)
  Receive Date: 20100830
  Receipt Date: 20100830
  Transmission Date: 20110219
  Serious: Yes (Disabling)
  Sender: FDA-Public Use
  Company Number: None

PATIENT
  Age: 61 Year
  Sex: Female
  Weight: 125.1928 kg

DRUGS (1)
  1. BENAZPRIL 10MG UDL [Suspect]
     Indication: HYPERTENSION
     Dosage: 10MG ONCE DAILY PO
     Route: 048
     Dates: start: 20100520, end: 20100529

REACTIONS (2)
  - BLOOD CREATINE INCREASED [None]
  - BLOOD POTASSIUM INCREASED [None]
